FAERS Safety Report 10688204 (Version 1)
Quarter: 2015Q1

REPORT INFORMATION
  Report Type: Spontaneous
  Country: US (occurrence: US)
  Receive Date: 20150102
  Receipt Date: 20150102
  Transmission Date: 20150720
  Serious: Yes (Death, Hospitalization)
  Sender: FDA-Public Use
  Company Number: US-WATSON-2014-27627

PATIENT
  Age: 75 Year
  Sex: Male

DRUGS (1)
  1. RAPAFLO [Suspect]
     Active Substance: SILODOSIN
     Indication: BENIGN PROSTATIC HYPERPLASIA
     Dosage: 1 DF, DAILY
     Route: 048

REACTIONS (2)
  - Chest pain [Unknown]
  - Death [Fatal]

NARRATIVE: CASE EVENT DATE: 20141106
